FAERS Safety Report 8779603 (Version 1)
Quarter: 2012Q4

REPORT INFORMATION
  Report Type: 
  Country: DE (occurrence: DE)
  Receive Date: 20120911
  Receipt Date: 20120911
  Transmission Date: 20130627
  Serious: Yes (Other)
  Sender: FDA-Public Use
  Company Number: DE-SANOFI-AVENTIS-2012SA064843

PATIENT
  Age: 84 Year
  Sex: Male

DRUGS (4)
  1. MULTAQ [Suspect]
     Indication: DRUG USE FOR UNKNOWN INDICATION
     Route: 048
  2. METOPROLOL [Concomitant]
  3. DIGITOXIN [Concomitant]
  4. INSULIN [Concomitant]

REACTIONS (2)
  - Renal impairment [Unknown]
  - Creatinine renal clearance decreased [Unknown]
